FAERS Safety Report 9456142 (Version 1)
Quarter: 2013Q3

REPORT INFORMATION
  Report Type: Spontaneous
  Country: DK (occurrence: DK)
  Receive Date: 20130813
  Receipt Date: 20130813
  Transmission Date: 20140515
  Serious: Yes (Hospitalization)
  Sender: FDA-Public Use
  Company Number: DK-ACTAVIS-2013-13953

PATIENT
  Age: 15 Year
  Sex: Female

DRUGS (1)
  1. PARACETAMOL (UNKNOWN) [Suspect]
     Indication: HEADACHE
     Dosage: 1 G, DAILY
     Route: 048
     Dates: start: 201307, end: 201307

REACTIONS (2)
  - Abdominal pain upper [Unknown]
  - Gastrointestinal surgery [Unknown]
